FAERS Safety Report 9399534 (Version 2)
Quarter: 2013Q3

REPORT INFORMATION
  Report Type: Spontaneous
  Country: US (occurrence: None)
  Receive Date: 20130710
  Receipt Date: 20130726
  Transmission Date: 20140515
  Serious: Yes (Hospitalization)
  Sender: FDA-Public Use
  Company Number: AUR-APL-2013-05753

PATIENT
  Age: 39 Year
  Sex: Female
  Weight: 70.31 kg

DRUGS (2)
  1. LEVOFLOXACIN [Suspect]
     Indication: BRONCHITIS
     Dosage: 500MG (500 MG, 1 IN 1 D), ORAL
     Route: 048
     Dates: start: 20130626
  2. LEXAPRO (ESCITALOPRAM OXALATE) [Concomitant]

REACTIONS (5)
  - Urticaria [None]
  - Cough [None]
  - Hypersensitivity [None]
  - Throat irritation [None]
  - Self-induced vomiting [None]
